FAERS Safety Report 23336055 (Version 1)
Quarter: 2023Q4

REPORT INFORMATION
  Report Type: Report from Study
  Country: AR (occurrence: AR)
  Receive Date: 20231225
  Receipt Date: 20231225
  Transmission Date: 20240110
  Serious: Yes (Hospitalization, Other)
  Sender: FDA-Public Use
  Company Number: AR-002147023-NVSC2023AR188072

PATIENT
  Age: 44 Year
  Sex: Male

DRUGS (3)
  1. MAYZENT [Suspect]
     Active Substance: SIPONIMOD
     Indication: Multiple sclerosis
     Dosage: 2 MG, UNKNOWN
     Route: 048
     Dates: start: 20230824
  2. MAYZENT [Suspect]
     Active Substance: SIPONIMOD
     Dosage: 2.5 MG, UNKNOWN
     Route: 048
  3. MAYZENT [Suspect]
     Active Substance: SIPONIMOD
     Dosage: 2 MG, QD
     Route: 048
     Dates: start: 20230828

REACTIONS (14)
  - Multiple sclerosis [Unknown]
  - Gait disturbance [Unknown]
  - Grip strength decreased [Unknown]
  - Hemiplegia [Unknown]
  - Joint noise [Unknown]
  - Muscle contracture [Unknown]
  - Drug intolerance [Unknown]
  - Malaise [Unknown]
  - Product use issue [Unknown]
  - Drug dose titration not performed [Unknown]
  - Product dispensing error [Unknown]
  - Wrong technique in product usage process [Unknown]
  - Pain [Unknown]
  - Headache [Unknown]

NARRATIVE: CASE EVENT DATE: 20230824
